FAERS Safety Report 19910961 (Version 1)
Quarter: 2021Q4

REPORT INFORMATION
  Report Type: Spontaneous
  Country: PT (occurrence: PT)
  Receive Date: 20211004
  Receipt Date: 20211004
  Transmission Date: 20220303
  Serious: Yes (Hospitalization)
  Sender: FDA-Public Use
  Company Number: PT-SAMSUNG BIOEPIS-SB-2021-22854

PATIENT
  Age: 60 Year
  Sex: Female

DRUGS (1)
  1. TRASTUZUMAB [Suspect]
     Active Substance: TRASTUZUMAB
     Indication: Invasive ductal breast carcinoma
     Dosage: UNKNOWN
     Route: 065

REACTIONS (4)
  - Haemorrhagic stroke [Recovering/Resolving]
  - Road traffic accident [Unknown]
  - Hypertension [Unknown]
  - Ventricular hypokinesia [Unknown]
